FAERS Safety Report 7142873-8 (Version None)
Quarter: 2010Q4

REPORT INFORMATION
  Report Type: 
  Country: None (occurrence: None)
  Receive Date: 20101207
  Receipt Date: 20101117
  Transmission Date: 20110411
  Serious: Yes (Life-Threatening, Hospitalization)
  Sender: FDA-Public Use
  Company Number: JP-AMGEN-JPNSP2010006198

PATIENT

DRUGS (4)
  1. ENBREL [Suspect]
     Indication: RHEUMATOID ARTHRITIS
     Dosage: 25 MG, 2X/WEEK
     Route: 058
     Dates: start: 20100310, end: 20101115
  2. RHEUMATREX [Concomitant]
     Indication: RHEUMATOID ARTHRITIS
     Dosage: 8 MG, WEEKLY
     Route: 048
     Dates: start: 20100121
  3. RHEUMATREX [Concomitant]
     Dosage: 10 MG, WEEKLY
     Route: 048
     Dates: start: 20100301
  4. OPALMON [Concomitant]
     Dosage: 1 DF, 3X/DAY
     Route: 048
     Dates: start: 20090831

REACTIONS (1)
  - THYROID CANCER [None]
